FAERS Safety Report 15267303 (Version 1)
Quarter: 2018Q3

REPORT INFORMATION
  Report Type: Spontaneous
  Country: US (occurrence: US)
  Receive Date: 20180724
  Receipt Date: 20180724
  Transmission Date: 20181010
  Serious: No
  Sender: FDA-Public Use
  Company Number: None

PATIENT
  Age: 63 Year
  Sex: Male
  Weight: 69.75 kg

DRUGS (2)
  1. NEOMYCIN. [Suspect]
     Active Substance: NEOMYCIN
     Indication: CATARACT
  2. POTASSIUM [Concomitant]
     Active Substance: POTASSIUM

REACTIONS (2)
  - Visual impairment [None]
  - Photopsia [None]

NARRATIVE: CASE EVENT DATE: 20180115
